FAERS Safety Report 15550391 (Version 1)
Quarter: 2018Q4

REPORT INFORMATION
  Report Type: Spontaneous
  Country: US (occurrence: US)
  Receive Date: 20181025
  Receipt Date: 20181025
  Transmission Date: 20190205
  Serious: Yes (Other)
  Sender: FDA-Public Use
  Company Number: US-BAYER-2018-198301

PATIENT
  Sex: Male
  Weight: 52.15 kg

DRUGS (4)
  1. TYVASO [Suspect]
     Active Substance: TREPROSTINIL
     Indication: PULMONARY ARTERIAL HYPERTENSION
     Dosage: 3-9 BREATHS QID
     Route: 055
     Dates: start: 20180801
  2. ADEMPAS [Suspect]
     Active Substance: RIOCIGUAT
     Dosage: UNK
  3. ADEMPAS [Suspect]
     Active Substance: RIOCIGUAT
     Dosage: 2.5 MG, UNK
  4. WARFARIN [Concomitant]
     Active Substance: WARFARIN
     Dosage: UNK

REACTIONS (13)
  - Fluid retention [None]
  - Blood potassium decreased [None]
  - Headache [None]
  - Cough [None]
  - Adverse reaction [None]
  - Blood glucose increased [None]
  - Nausea [None]
  - Dizziness [None]
  - Abdominal distension [None]
  - Hypotension [None]
  - Dyspnoea [None]
  - Weight increased [None]
  - Somnolence [None]
